FAERS Safety Report 11274362 (Version 1)
Quarter: 2015Q3

REPORT INFORMATION
  Report Type: Spontaneous
  Country: AU (occurrence: AU)
  Receive Date: 20150715
  Receipt Date: 20150715
  Transmission Date: 20151125
  Serious: Yes (Other)
  Sender: FDA-Public Use
  Company Number: AU-BAXTER-2015BAX037747

PATIENT
  Age: 35 Year
  Sex: Female
  Weight: 73 kg

DRUGS (9)
  1. ERGOMETRINE [Suspect]
     Active Substance: ERGONOVINE MALEATE
     Indication: PRODUCT USED FOR UNKNOWN INDICATION
     Route: 065
  2. PROSTIN [Suspect]
     Active Substance: ALPROSTADIL
     Indication: PRODUCT USED FOR UNKNOWN INDICATION
     Route: 065
  3. OXYTOCIN. [Suspect]
     Active Substance: OXYTOCIN
     Indication: VULVOVAGINAL INJURY
  4. TRANEXAMIC ACID. [Suspect]
     Active Substance: TRANEXAMIC ACID
     Indication: PRODUCT USED FOR UNKNOWN INDICATION
     Route: 065
  5. METARAMINOL [Suspect]
     Active Substance: METARAMINOL
     Indication: PRODUCT USED FOR UNKNOWN INDICATION
     Route: 041
  6. PLASMA-LYTE 148 [Suspect]
     Active Substance: MAGNESIUM CHLORIDE\POTASSIUM CHLORIDE\SODIUM ACETATE\SODIUM CHLORIDE\SODIUM GLUCONATE
     Indication: POSTPARTUM HAEMORRHAGE
     Route: 042
  7. OXYTOCIN. [Suspect]
     Active Substance: OXYTOCIN
     Indication: PERINEAL INJURY
     Route: 065
  8. ALBUMIN [Suspect]
     Active Substance: ALBUMIN (HUMAN)
     Indication: POSTPARTUM HAEMORRHAGE
     Dosage: 2 UNITS
     Route: 042
  9. BAXTER 0.9% SODIUM CHLORIDE 9G_L INJECTION BP BAG AHB1324 [Suspect]
     Active Substance: SODIUM CHLORIDE
     Indication: POSTPARTUM HAEMORRHAGE
     Route: 042

REACTIONS (5)
  - Post procedural complication [None]
  - Faecal incontinence [Unknown]
  - Pulmonary oedema [Unknown]
  - Hypertension [Unknown]
  - Lactation disorder [Unknown]
